FAERS Safety Report 8976863 (Version 1)
Quarter: 2012Q4

REPORT INFORMATION
  Report Type: 
  Country: US (occurrence: US)
  Receive Date: 20121220
  Receipt Date: 20121220
  Transmission Date: 20130627
  Serious: No
  Sender: FDA-Public Use
  Company Number: US-GLAXOSMITHKLINE-A0962225A

PATIENT
  Age: 64 Year
  Sex: Female

DRUGS (5)
  1. RYTHMOL [Suspect]
     Indication: ATRIAL FIBRILLATION
     Dosage: 1TAB Four times per day
     Route: 048
     Dates: start: 201110
  2. PREVACID [Concomitant]
  3. TENORMIN [Concomitant]
  4. VALTREX [Concomitant]
  5. LOVAZA [Concomitant]

REACTIONS (11)
  - Fatigue [Recovered/Resolved]
  - Lymphadenopathy [Unknown]
  - Pain in extremity [Unknown]
  - Cardiac flutter [Unknown]
  - Headache [Unknown]
  - Eye pruritus [Unknown]
  - Back pain [Unknown]
  - Pharyngeal oedema [Unknown]
  - Throat irritation [Unknown]
  - Hypoaesthesia [Unknown]
  - Product quality issue [Unknown]
